FAERS Safety Report 23814674 (Version 1)
Quarter: 2024Q2

REPORT INFORMATION
  Report Type: Spontaneous
  Country: US (occurrence: US)
  Receive Date: 20240503
  Receipt Date: 20240503
  Transmission Date: 20240716
  Serious: No
  Sender: FDA-Public Use
  Company Number: US-GILEAD-2024-0671175

PATIENT
  Sex: Male

DRUGS (1)
  1. LENACAPAVIR [Suspect]
     Active Substance: LENACAPAVIR
     Indication: Product used for unknown indication
     Dosage: UNK
     Route: 058
     Dates: start: 20240426

REACTIONS (2)
  - Injection site discharge [Unknown]
  - Accidental underdose [Recovered/Resolved]

NARRATIVE: CASE EVENT DATE: 20240426
